FAERS Safety Report 11454261 (Version 1)
Quarter: 2015Q3

REPORT INFORMATION
  Report Type: Other
  Country: DK (occurrence: DK)
  Receive Date: 20150903
  Receipt Date: 20150903
  Transmission Date: 20151125
  Serious: Yes (Other)
  Sender: FDA-Public Use
  Company Number: DK-MYLANLABS-2014S1001316

PATIENT

DRUGS (2)
  1. ALENDRONATE [Suspect]
     Active Substance: ALENDRONATE SODIUM
     Indication: OSTEOPOROSIS
     Dosage: 70 MG, QW
     Route: 048
     Dates: start: 20060615, end: 20101231
  2. PROLIA [Suspect]
     Active Substance: DENOSUMAB
     Indication: OSTEOPOROSIS
     Dosage: 60 MG,UNK (STYRKE: 60 MG/ML)
     Route: 058
     Dates: start: 20110715, end: 20131206

REACTIONS (3)
  - Osteonecrosis of jaw [Recovered/Resolved]
  - Pain [Recovered/Resolved]
  - Sequestrectomy [Recovered/Resolved]

NARRATIVE: CASE EVENT DATE: 20130524
